FAERS Safety Report 5839940-5 (Version None)
Quarter: 2008Q3

REPORT INFORMATION
  Report Type: 
  Country: None (occurrence: None)
  Receive Date: 20080811
  Receipt Date: 20080729
  Transmission Date: 20090109
  Serious: Yes (Hospitalization)
  Sender: FDA-Public Use
  Company Number: FR-JNJFOC-20080800028

PATIENT
  Sex: Female

DRUGS (3)
  1. DURAGESIC-100 [Suspect]
     Indication: DRUG USE FOR UNKNOWN INDICATION
     Route: 062
  2. GEMCITABINE [Concomitant]
     Route: 042
  3. GEMCITABINE [Concomitant]
     Indication: PANCREATIC CARCINOMA
     Route: 042

REACTIONS (1)
  - SUBILEUS [None]
